FAERS Safety Report 7550516-4 (Version None)
Quarter: 2011Q2

REPORT INFORMATION
  Report Type: 
  Country: None (occurrence: None)
  Receive Date: 20110615
  Receipt Date: 20110603
  Transmission Date: 20111010
  Serious: Yes (Other)
  Sender: FDA-Public Use
  Company Number: CZ-ELI_LILLY_AND_COMPANY-CZ201106002946

PATIENT

DRUGS (6)
  1. ZYPREXA [Suspect]
     Dosage: 10 MG, QD
     Route: 064
     Dates: end: 20100708
  2. ZYPREXA [Suspect]
     Dosage: 5 MG, QD
     Route: 064
     Dates: start: 20100709, end: 20100712
  3. ZYPREXA [Suspect]
     Dosage: 2.5 MG, QD
     Route: 064
     Dates: start: 20100713, end: 20100716
  4. ZYPREXA [Suspect]
     Dosage: 2.5 MG, QD
     Route: 064
     Dates: start: 20100713, end: 20100716
  5. ZYPREXA [Suspect]
     Dosage: 5 MG, QD
     Route: 064
     Dates: start: 20100709, end: 20100712
  6. ZYPREXA [Suspect]
     Indication: SCHIZOAFFECTIVE DISORDER
     Dosage: 10 MG, QD
     Route: 064
     Dates: end: 20100708

REACTIONS (4)
  - DRUG EXPOSURE DURING PREGNANCY [None]
  - HYPOXIA [None]
  - APGAR SCORE LOW [None]
  - JAUNDICE NEONATAL [None]
